FAERS Safety Report 12477491 (Version 7)
Quarter: 2018Q2

REPORT INFORMATION
  Report Type: Report from Study
  Country: US (occurrence: US)
  Receive Date: 20160617
  Receipt Date: 20180606
  Transmission Date: 20180711
  Serious: Yes (Other)
  Sender: FDA-Public Use
  Company Number: PHEH2016US015102

PATIENT
  Sex: Male

DRUGS (4)
  1. AFINITOR [Suspect]
     Active Substance: EVEROLIMUS
     Indication: ANGIOMYOLIPOMA
     Dosage: 5 MG, QD(ONCE DAILY)
     Route: 048
     Dates: start: 20160307
  2. CLARITIN [Concomitant]
     Active Substance: LORATADINE
     Indication: PRODUCT USED FOR UNKNOWN INDICATION
     Route: 065
  3. ASTHALIN//SALBUTAMOL [Concomitant]
     Indication: PRODUCT USED FOR UNKNOWN INDICATION
     Route: 045
  4. KENALOG [Concomitant]
     Active Substance: TRIAMCINOLONE ACETONIDE
     Indication: PRODUCT USED FOR UNKNOWN INDICATION
     Dosage: PRN
     Route: 061

REACTIONS (10)
  - Drug level decreased [Unknown]
  - Nasal polyps [Not Recovered/Not Resolved]
  - Alopecia [Unknown]
  - Nasopharyngitis [Recovering/Resolving]
  - Arthralgia [Unknown]
  - Hypoaesthesia [Unknown]
  - Angiomyolipoma [Unknown]
  - Melanoderma [Unknown]
  - Pain [Unknown]
  - Paraesthesia [Unknown]
